FAERS Safety Report 14475636 (Version 1)
Quarter: 2018Q1

REPORT INFORMATION
  Report Type: Spontaneous
  Country: KR (occurrence: KR)
  Receive Date: 20180201
  Receipt Date: 20180201
  Transmission Date: 20180509
  Serious: Yes (Other)
  Sender: FDA-Public Use
  Company Number: KR-TAKEDA-2018TEU000492

PATIENT
  Age: 74 Year
  Sex: Female

DRUGS (7)
  1. RYTMONORM [Concomitant]
     Active Substance: PROPAFENONE
     Dosage: UNK
     Route: 048
     Dates: start: 20180116
  2. LIXIANA [Concomitant]
     Active Substance: EDOXABAN TOSYLATE
     Dosage: UNK
     Route: 048
     Dates: start: 20180116
  3. PHENIRAMINE                        /00072502/ [Concomitant]
     Dosage: UNK
     Route: 065
     Dates: start: 20180119, end: 20180119
  4. DEXILANT [Suspect]
     Active Substance: DEXLANSOPRAZOLE
     Indication: PRODUCT USED FOR UNKNOWN INDICATION
     Dosage: 30 MG, QD
     Route: 048
     Dates: start: 20180116, end: 20180116
  5. PHENIRAMINE                        /00072502/ [Concomitant]
     Dosage: UNK
     Route: 065
     Dates: start: 20180116, end: 20180116
  6. DEXILANT [Suspect]
     Active Substance: DEXLANSOPRAZOLE
     Dosage: 30 MG, QD
     Route: 048
     Dates: start: 20180119, end: 20180119
  7. ELIQUIS [Concomitant]
     Active Substance: APIXABAN
     Dosage: UNK
     Route: 048
     Dates: start: 20180119

REACTIONS (7)
  - Anaphylactic reaction [Recovered/Resolved]
  - Vomiting [Recovered/Resolved]
  - Loss of consciousness [Recovered/Resolved]
  - Blood pressure decreased [Recovered/Resolved]
  - Erythema [Recovered/Resolved]
  - Atrial fibrillation [Recovered/Resolved]
  - Pruritus [Recovered/Resolved]

NARRATIVE: CASE EVENT DATE: 20180116
